FAERS Safety Report 14907023 (Version 2)
Quarter: 2018Q3

REPORT INFORMATION
  Report Type: Spontaneous
  Country: US (occurrence: US)
  Receive Date: 20180517
  Receipt Date: 20180706
  Transmission Date: 20181010
  Serious: No
  Sender: FDA-Public Use
  Company Number: US-BIOFRONTERA-000482

PATIENT
  Age: 56 Year
  Sex: Male

DRUGS (3)
  1. AMELUZ [Suspect]
     Active Substance: AMINOLEVULINIC ACID HYDROCHLORIDE
     Indication: ACTINIC KERATOSIS
     Route: 061
     Dates: start: 20180423, end: 20180423
  2. RETINA MICRO 0.08% [Concomitant]
     Indication: ACTINIC KERATOSIS
  3. VALCYCLOVIR 500 MG [Concomitant]

REACTIONS (2)
  - Off label use [Recovered/Resolved]
  - Application site erythema [Recovered/Resolved]

NARRATIVE: CASE EVENT DATE: 20180423
